FAERS Safety Report 13630887 (Version 1)
Quarter: 2017Q2

REPORT INFORMATION
  Report Type: Spontaneous
  Country: US (occurrence: US)
  Receive Date: 20170531
  Receipt Date: 20170531
  Transmission Date: 20170830
  Serious: No
  Sender: FDA-Public Use
  Company Number: US-ASTELLAS-1336848

PATIENT
  Age: 57 Year
  Sex: Male

DRUGS (18)
  1. ASPIRIN. [Concomitant]
     Active Substance: ASPIRIN
  2. CITALOPRAM [Concomitant]
     Active Substance: CITALOPRAM HYDROBROMIDE
  3. GABAPENTIN. [Concomitant]
     Active Substance: GABAPENTIN
  4. NORCO [Concomitant]
     Active Substance: ACETAMINOPHEN\HYDROCODONE BITARTRATE
  5. LIPITOR [Concomitant]
     Active Substance: ATORVASTATIN CALCIUM
  6. NASONEX [Concomitant]
     Active Substance: MOMETASONE FUROATE
  7. PLAVIX [Concomitant]
     Active Substance: CLOPIDOGREL BISULFATE
  8. TARCEVA [Suspect]
     Active Substance: ERLOTINIB HYDROCHLORIDE
     Indication: LUNG NEOPLASM MALIGNANT
     Route: 048
     Dates: start: 20131220
  9. RISPERDAL [Concomitant]
     Active Substance: RISPERIDONE
  10. RANITIDINE. [Concomitant]
     Active Substance: RANITIDINE
  11. TRAZODONE [Concomitant]
     Active Substance: TRAZODONE HYDROCHLORIDE
  12. ALPRAZOLAM. [Concomitant]
     Active Substance: ALPRAZOLAM
  13. FUROSEMIDE. [Concomitant]
     Active Substance: FUROSEMIDE
  14. LISINOPRIL. [Concomitant]
     Active Substance: LISINOPRIL
  15. ADVAIR HFA [Concomitant]
     Active Substance: FLUTICASONE PROPIONATE\SALMETEROL XINAFOATE
  16. DIGOXIN. [Concomitant]
     Active Substance: DIGOXIN
  17. NITROGLYCERIN TABLETS [Concomitant]
     Route: 065
  18. PROAIR HFA [Concomitant]
     Active Substance: ALBUTEROL SULFATE

REACTIONS (1)
  - Rash [Recovering/Resolving]

NARRATIVE: CASE EVENT DATE: 20131220
